FAERS Safety Report 8601775-8 (Version None)
Quarter: 2012Q3

REPORT INFORMATION
  Report Type: 
  Country: None (occurrence: None)
  Receive Date: 20120817
  Receipt Date: 20120523
  Transmission Date: 20120928
  Serious: No
  Sender: FDA-Public Use
  Company Number: US-BRISTOL-MYERS SQUIBB COMPANY-16507576

PATIENT
  Age: 42 Year
  Sex: Female
  Weight: 50 kg

DRUGS (4)
  1. TYKERB [Concomitant]
  2. SODIUM PHENYLBUTYRATE [Concomitant]
  3. XELODA [Concomitant]
  4. SPRYCEL [Suspect]
     Indication: RECTAL CANCER STAGE III
     Route: 048
     Dates: start: 20120328, end: 20120401

REACTIONS (4)
  - BLISTER [None]
  - HEADACHE [None]
  - FATIGUE [None]
  - MILIA [None]
